FAERS Safety Report 18951780 (Version 3)
Quarter: 2021Q2

REPORT INFORMATION
  Report Type: Spontaneous
  Country: US (occurrence: US)
  Receive Date: 20210301
  Receipt Date: 20210508
  Transmission Date: 20210717
  Serious: Yes (Other)
  Sender: FDA-Public Use
  Company Number: US-LUPIN PHARMACEUTICALS INC.-2021-02297

PATIENT
  Age: 77 Year
  Sex: Female
  Weight: 45.35 kg

DRUGS (4)
  1. MELATONIN [Concomitant]
     Active Substance: MELATONIN
     Indication: INSOMNIA
     Dosage: 10 MILLIGRAM
     Route: 065
  2. VITAMIN D3 [Concomitant]
     Active Substance: CHOLECALCIFEROL
     Indication: PRODUCT USED FOR UNKNOWN INDICATION
     Dosage: 25 MICROGRAM, QD
     Route: 065
  3. CEPHALEXIN CAPSULES USP, 500 MG [Suspect]
     Active Substance: CEPHALEXIN
     Indication: THERMAL BURN
     Dosage: 500 MILLIGRAM, QID
     Route: 065
     Dates: start: 20200823, end: 20200825
  4. CALCIUM+VITAMIN D3 [Concomitant]
     Active Substance: CALCIUM\CHOLECALCIFEROL
     Indication: PRODUCT USED FOR UNKNOWN INDICATION
     Dosage: 400 MILLIGRAM, QD
     Route: 065

REACTIONS (5)
  - Blister [Recovered/Resolved]
  - Hypersensitivity [Recovered/Resolved]
  - Abscess drainage [Recovered/Resolved]
  - Rash [Recovered/Resolved]
  - Pruritus [Recovered/Resolved]

NARRATIVE: CASE EVENT DATE: 20200825
